FAERS Safety Report 20573443 (Version 3)
Quarter: 2024Q2

REPORT INFORMATION
  Report Type: Spontaneous
  Country: US (occurrence: US)
  Receive Date: 20220309
  Receipt Date: 20240529
  Transmission Date: 20240716
  Serious: No
  Sender: FDA-Public Use
  Company Number: US-INCYTE CORPORATION-2022IN002129

PATIENT

DRUGS (5)
  1. JAKAFI [Suspect]
     Active Substance: RUXOLITINIB
     Indication: Graft versus host disease
     Dosage: 10 MILLIGRAM, BID
     Route: 048
     Dates: start: 20210120
  2. JAKAFI [Suspect]
     Active Substance: RUXOLITINIB
     Dosage: 5 MILLIGRAM, BID
     Route: 048
     Dates: start: 20230505
  3. JAKAFI [Suspect]
     Active Substance: RUXOLITINIB
     Dosage: 10 MILLIGRAM
     Route: 065
  4. LOTEMAX [Concomitant]
     Active Substance: LOTEPREDNOL ETABONATE
     Indication: Product used for unknown indication
     Dosage: 0.5 PERCENT
     Route: 065
  5. FLOVENT HFA [Concomitant]
     Active Substance: FLUTICASONE PROPIONATE
     Indication: Product used for unknown indication
     Dosage: 44 MCG
     Route: 065

REACTIONS (4)
  - Illness [Unknown]
  - Product dose omission issue [Unknown]
  - Product dose omission in error [Unknown]
  - Vomiting [Unknown]

NARRATIVE: CASE EVENT DATE: 20230202
